FAERS Safety Report 17182147 (Version 1)
Quarter: 2019Q4

REPORT INFORMATION
  Report Type: Report from Study
  Country: AR (occurrence: AR)
  Receive Date: 20191220
  Receipt Date: 20191220
  Transmission Date: 20200122
  Serious: Yes (Other)
  Sender: FDA-Public Use
  Company Number: AR-EMD SERONO-9135536

PATIENT
  Age: 5 Year
  Sex: Male

DRUGS (2)
  1. SAIZEN [Suspect]
     Active Substance: SOMATROPIN
     Indication: PRODUCT USED FOR UNKNOWN INDICATION
     Route: 058
     Dates: start: 20170101, end: 2019
  2. SAIZEN [Suspect]
     Active Substance: SOMATROPIN
     Dosage: RESUMED THE TREATMENT
     Route: 058
     Dates: start: 201911

REACTIONS (4)
  - Hypersensitivity [Recovering/Resolving]
  - Decreased immune responsiveness [Not Recovered/Not Resolved]
  - Off label use [Unknown]
  - Bronchial disorder [Not Recovered/Not Resolved]

NARRATIVE: CASE EVENT DATE: 20170101
